FAERS Safety Report 7483889-1 (Version None)
Quarter: 2011Q2

REPORT INFORMATION
  Report Type: 
  Country: None (occurrence: None)
  Receive Date: 20110517
  Receipt Date: 20110503
  Transmission Date: 20111010
  Serious: Yes (Disabling)
  Sender: FDA-Public Use
  Company Number: US-MYLANLABS-2011S1009475

PATIENT
  Sex: Male

DRUGS (6)
  1. MYCOPHENOLATE MOFETIL [Suspect]
     Dosage: REPORTED AS AN ENTIRE BOTTLE'S CONTENTS
     Route: 064
  2. OMEPRAZOLE [Concomitant]
     Dosage: 20MG DAILY
     Route: 064
  3. TACROLIMUS [Concomitant]
     Dosage: 6MG DAILY
     Route: 064
  4. PREDNISONE [Concomitant]
     Dosage: 5MG DAILY
     Route: 064
  5. FERROUS SULFATE TAB [Concomitant]
     Dosage: 600MG DAILY
     Route: 064
  6. MYCOPHENOLATE MOFETIL [Suspect]
     Indication: IMMUNOSUPPRESSION
     Dosage: 1 G/DAY
     Route: 064

REACTIONS (19)
  - MULTIPLE CONGENITAL ABNORMALITIES [None]
  - CONGENITAL EYE DISORDER [None]
  - CONGENITAL MUSCULOSKELETAL ANOMALY [None]
  - FOETAL GROWTH RESTRICTION [None]
  - DEVELOPMENTAL DELAY [None]
  - DRUG EXPOSURE DURING PREGNANCY [None]
  - HEART DISEASE CONGENITAL [None]
  - DELAYED FONTANELLE CLOSURE [None]
  - CONGENITAL ANOMALY [None]
  - UMBILICAL CORD ABNORMALITY [None]
  - PALATAL DISORDER [None]
  - SHOULDER DEFORMITY [None]
  - JOINT ANKYLOSIS [None]
  - PTERYGIUM COLLI [None]
  - MICROTIA [None]
  - MICROPHTHALMOS [None]
  - ANOMALY OF EXTERNAL EAR CONGENITAL [None]
  - MICROGNATHIA [None]
  - CRYPTORCHISM [None]
